FAERS Safety Report 5930725-8 (Version None)
Quarter: 2008Q4

REPORT INFORMATION
  Report Type: 
  Country: None (occurrence: None)
  Receive Date: 20081022
  Receipt Date: 20081008
  Transmission Date: 20090506
  Serious: Yes (Hospitalization)
  Sender: FDA-Public Use
  Company Number: 2008BI000779

PATIENT
  Age: 47 Year
  Sex: Female

DRUGS (3)
  1. TYSABRI [Suspect]
     Indication: MULTIPLE SCLEROSIS
     Dosage: 300 MG; QW; IV
     Route: 042
     Dates: start: 20070205
  2. . [Concomitant]
  3. . [Concomitant]

REACTIONS (5)
  - ARTHRITIS INFECTIVE [None]
  - DISEASE PROGRESSION [None]
  - OSTEOARTHRITIS [None]
  - POST PROCEDURAL COMPLICATION [None]
  - PURULENCE [None]
